FAERS Safety Report 9415481 (Version 2)
Quarter: 2013Q3

REPORT INFORMATION
  Report Type: Spontaneous
  Country: US (occurrence: US)
  Receive Date: 20130723
  Receipt Date: 20130725
  Transmission Date: 20140515
  Serious: No
  Sender: FDA-Public Use
  Company Number: US-PFIZER INC-2013214755

PATIENT
  Age: 45 Year
  Sex: Female
  Weight: 62.59 kg

DRUGS (4)
  1. LYRICA [Suspect]
     Indication: FIBROMYALGIA
     Dosage: 75 MG, 2X/DAY
     Dates: start: 20130703
  2. LYRICA [Suspect]
     Indication: NEURALGIA
  3. TRAMADOL HYDROCHLORIDE [Suspect]
     Indication: FIBROMYALGIA
     Dosage: 100 MG, 1X/DAY
     Dates: start: 2013
  4. TRAMADOL HYDROCHLORIDE [Suspect]
     Indication: NEURALGIA

REACTIONS (1)
  - Drug ineffective [Unknown]
